FAERS Safety Report 8573157-9 (Version None)
Quarter: 2012Q3

REPORT INFORMATION
  Report Type: 
  Country: None (occurrence: None)
  Receive Date: 20120806
  Receipt Date: 20120725
  Transmission Date: 20120928
  Serious: Yes (Hospitalization, Other)
  Sender: FDA-Public Use
  Company Number: US-BAYER-2012-052610

PATIENT
  Age: 20 Year
  Sex: Female

DRUGS (23)
  1. YASMIN [Suspect]
     Indication: DYSMENORRHOEA
     Dosage: UNK
     Dates: start: 20050727, end: 20060420
  2. ULTRACET [Concomitant]
  3. ULTRAM [Concomitant]
     Dosage: 50 MG, ONE TO TWO TABLETS EVERY 6 HOURS
     Dates: start: 20060418
  4. ZOFRAN [Concomitant]
  5. TORADOL [Concomitant]
     Indication: HEADACHE
  6. ALLEGRA-D 12 HOUR [Concomitant]
     Indication: RHINITIS ALLERGIC
     Dosage: 180 MG, QHS
     Route: 048
  7. DEMEROL [Concomitant]
     Route: 042
  8. SODIUM CHLORIDE [Concomitant]
     Route: 042
  9. MIDRIN [Concomitant]
     Indication: MIGRAINE
     Dosage: UNK UNK, PRN
  10. PERCOCET [Concomitant]
     Indication: HEADACHE
  11. TOPAMAX [Concomitant]
     Indication: MAJOR DEPRESSION
     Dosage: 300 MG, QHS
     Route: 048
  12. CALCIUM [Concomitant]
     Dosage: DAILY
  13. ISOMETHEPTENE/DICHLORALPHENAZONE/APAP [Concomitant]
     Dosage: 65-325
     Dates: start: 20060417
  14. CITALOPRAM HYDROBROMIDE [Concomitant]
     Indication: MAJOR DEPRESSION
     Dosage: 10 MG, QHS
     Route: 048
  15. TOPAMAX [Concomitant]
     Dosage: 100 MG, UNK
     Dates: start: 20060305
  16. TRAMADOL HYDROCHLORIDE [Concomitant]
     Dosage: 50 MG, UNK
     Dates: start: 20060419
  17. M.V.I. [Concomitant]
     Dosage: DAILY
  18. MAXALT [Concomitant]
  19. HYDROCODONE BITARTRATE + ACETAMINOPHEN [Concomitant]
     Dosage: 5-500 MG
     Dates: start: 20060418
  20. OXYCODONE HCL [Concomitant]
     Indication: BREAKTHROUGH PAIN
     Dosage: UNK UNK, PRN
  21. VICODIN [Concomitant]
     Dosage: TWO, PRN
     Route: 048
  22. PROMETHAZINE HYDROCHLORIDE [Concomitant]
     Dosage: 25 MG, UNK
     Dates: start: 20060304
  23. PHENERGAN HCL [Concomitant]

REACTIONS (9)
  - SUPERIOR SAGITTAL SINUS THROMBOSIS [None]
  - HEADACHE [None]
  - BENIGN INTRACRANIAL HYPERTENSION [None]
  - DEPRESSION [None]
  - EMOTIONAL DISTRESS [None]
  - OCCIPITAL NEURALGIA [None]
  - INJURY [None]
  - PAIN [None]
  - INTRACRANIAL PRESSURE INCREASED [None]
